FAERS Safety Report 6091403-0 (Version None)
Quarter: 2009Q1

REPORT INFORMATION
  Report Type: 
  Country: None (occurrence: None)
  Receive Date: 20090225
  Receipt Date: 20090116
  Transmission Date: 20090719
  Serious: No
  Sender: FDA-Public Use
  Company Number: A0762358A

PATIENT
  Age: 62 Year
  Sex: Male

DRUGS (3)
  1. VERAMYST [Suspect]
     Dosage: 2SPR TWICE PER DAY
     Route: 045
     Dates: start: 20080101, end: 20090104
  2. LIPITOR [Concomitant]
  3. METOPROLOL [Concomitant]

REACTIONS (2)
  - EPISTAXIS [None]
  - SCAB [None]
